FAERS Safety Report 4951958-3 (Version None)
Quarter: 2006Q1

REPORT INFORMATION
  Report Type: 
  Country: None (occurrence: None)
  Receive Date: 20060323
  Receipt Date: 20060313
  Transmission Date: 20060701
  Serious: Yes (Hospitalization)
  Sender: FDA-Public Use
  Company Number: FR-ROCHE-440267

PATIENT
  Age: 52 Year
  Sex: Male
  Weight: 48 kg

DRUGS (4)
  1. ROCEPHIN [Suspect]
     Indication: ESCHERICHIA SEPSIS
     Route: 042
     Dates: start: 20060207, end: 20060215
  2. DURAGESIC-100 [Suspect]
     Indication: DRUG USE FOR UNKNOWN INDICATION
     Dosage: ROUTE REPORTED AS: ^LOCAL^.
     Route: 050
     Dates: start: 20051201
  3. CIFLOX [Suspect]
     Indication: ESCHERICHIA SEPSIS
     Route: 065
     Dates: start: 20060207, end: 20060215
  4. CISPLATIN [Suspect]
     Indication: DRUG USE FOR UNKNOWN INDICATION
     Dosage: CISPLATINE WAS REPORTED AS: ^CYSPLATINE^. DOSAGE REGIMEN REPORTED AS: ^ 130 MG/C^.
     Route: 042
     Dates: start: 20060125, end: 20060125

REACTIONS (2)
  - CONFUSIONAL STATE [None]
  - HALLUCINATION [None]
